FAERS Safety Report 11003838 (Version 1)
Quarter: 2015Q2

REPORT INFORMATION
  Report Type: Report from Study
  Country: DE (occurrence: DE)
  Receive Date: 20150409
  Receipt Date: 20150409
  Transmission Date: 20150821
  Serious: Yes (Hospitalization)
  Sender: FDA-Public Use
  Company Number: DE-JNJFOC-20150202516

PATIENT
  Age: 61 Year
  Sex: Male
  Weight: 128 kg

DRUGS (6)
  1. ABIRATERONE ACETATE [Suspect]
     Active Substance: ABIRATERONE ACETATE
     Indication: PROSTATE CANCER METASTATIC
     Route: 048
     Dates: start: 20141220
  2. PAMORELIN [Concomitant]
     Active Substance: TRIPTORELIN PAMOATE
     Indication: BLOOD TESTOSTERONE DECREASED
     Dates: start: 20140812
  3. CALCIUM [Concomitant]
     Active Substance: CALCIUM
     Indication: BONE DISORDER
     Dates: start: 20141218
  4. PREDNISOLONE. [Concomitant]
     Active Substance: PREDNISOLONE
     Indication: PRODUCT USED FOR UNKNOWN INDICATION
     Dates: start: 20141220
  5. TAMSUBLOCK [Concomitant]
     Indication: POLLAKIURIA
     Route: 065
     Dates: start: 20141218
  6. XGEVA [Concomitant]
     Active Substance: DENOSUMAB
     Indication: METASTASES TO BONE
     Dates: start: 20150121

REACTIONS (3)
  - Acute kidney injury [Not Recovered/Not Resolved]
  - Hypoglycaemia [Recovered/Resolved with Sequelae]
  - Urinary retention [Recovered/Resolved with Sequelae]

NARRATIVE: CASE EVENT DATE: 20150203
